FAERS Safety Report 4675000-7 (Version None)
Quarter: 2005Q2

REPORT INFORMATION
  Report Type: 
  Country: None (occurrence: None)
  Receive Date: 20050525
  Receipt Date: 20050518
  Transmission Date: 20051028
  Serious: Yes (Hospitalization)
  Sender: FDA-Public Use
  Company Number: S05-USA-02637-01

PATIENT
  Age: 60 Year
  Sex: Female

DRUGS (3)
  1. THYROLAR-1 [Suspect]
     Indication: HYPOTHYROIDISM
     Dates: start: 20030101
  2. ATENOLOL [Concomitant]
  3. FLEXERIL [Concomitant]

REACTIONS (1)
  - HYPERTENSION [None]
